FAERS Safety Report 5306430-8 (Version None)
Quarter: 2007Q2

REPORT INFORMATION
  Report Type: 
  Country: None (occurrence: None)
  Receive Date: 20070418
  Receipt Date: 20070403
  Transmission Date: 20071010
  Serious: Yes (Other)
  Sender: FDA-Public Use
  Company Number: SPV1-2007-01893

PATIENT
  Age: 54 Year
  Sex: Female

DRUGS (3)
  1. CARBAMAZEPINE [Suspect]
     Indication: CONVULSION PROPHYLAXIS
     Dosage: 600MG DAILY, 200 MG, DAILY
  2. DIAZEPAM [Concomitant]
  3. BROMAZEPAM (BROMAZEPAM) [Concomitant]

REACTIONS (5)
  - BLOOD POTASSIUM DECREASED [None]
  - DISORIENTATION [None]
  - GRAND MAL CONVULSION [None]
  - HYPONATRAEMIA [None]
  - SUICIDAL IDEATION [None]
